FAERS Safety Report 25464812 (Version 1)
Quarter: 2025Q2

REPORT INFORMATION
  Report Type: Spontaneous
  Country: US (occurrence: US)
  Receive Date: 20250622
  Receipt Date: 20250622
  Transmission Date: 20250717
  Serious: No
  Sender: SANOFI AVENTIS
  Company Number: US-SA-2025SA175564

PATIENT
  Sex: Male

DRUGS (17)
  1. DUPIXENT [Suspect]
     Active Substance: DUPILUMAB
     Indication: Generalised anxiety disorder
     Dosage: 300 MG, QOW
     Route: 058
  2. AMOXICILLIN [Concomitant]
     Active Substance: AMOXICILLIN
  3. ATENOLOL AND CHLORTHALIDONE [Concomitant]
     Active Substance: ATENOLOL\CHLORTHALIDONE
  4. BENZTROPINE [Concomitant]
     Active Substance: BENZTROPINE
  5. BETAMETHASONE [Concomitant]
     Active Substance: BETAMETHASONE
  6. BUPROPION [Concomitant]
     Active Substance: BUPROPION
  7. Clonazepam Cevallos [Concomitant]
  8. CYCLOBENZAPRINE [Concomitant]
     Active Substance: CYCLOBENZAPRINE
  9. GABAPENTIN [Concomitant]
     Active Substance: GABAPENTIN
  10. METHYLPHENIDATE [Concomitant]
     Active Substance: METHYLPHENIDATE
  11. PANTOPRAZOLE [Concomitant]
     Active Substance: PANTOPRAZOLE
  12. PREDNISONE [Concomitant]
     Active Substance: PREDNISONE
  13. ROSUVASTATIN [Concomitant]
     Active Substance: ROSUVASTATIN
  14. TESTOSTERONE [Concomitant]
     Active Substance: TESTOSTERONE
  15. TRAMADOL [Concomitant]
     Active Substance: TRAMADOL
  16. ZIPRASIDONE [Concomitant]
     Active Substance: ZIPRASIDONE
  17. ZOLPIDEM [Concomitant]
     Active Substance: ZOLPIDEM TARTRATE

REACTIONS (3)
  - Eye pain [Unknown]
  - Headache [Unknown]
  - Product use in unapproved indication [Unknown]
